FAERS Safety Report 8536347-7 (Version None)
Quarter: 2012Q3

REPORT INFORMATION
  Report Type: 
  Country: None (occurrence: None)
  Receive Date: 20120725
  Receipt Date: 20120702
  Transmission Date: 20120928
  Serious: Yes (Other)
  Sender: FDA-Public Use
  Company Number: BE-COVIDIEN/TYCO HEALTHCARE/MALLINCKRODT-T201202731

PATIENT
  Sex: Female

DRUGS (3)
  1. SOLU-MEDROL [Concomitant]
     Indication: PREMEDICATION
     Dosage: 125 MG, UNK
     Route: 042
  2. SODIUM CHLORIDE [Concomitant]
     Indication: PREMEDICATION
     Dosage: 40 ML/H
     Route: 042
  3. OPTIRAY 160 [Suspect]
     Indication: ANGIOGRAM
     Dosage: 80 ML, SINGLE
     Route: 042
     Dates: start: 20120604, end: 20120604

REACTIONS (4)
  - EYELID OEDEMA [None]
  - BRONCHOSPASM [None]
  - EYE SWELLING [None]
  - DYSPNOEA [None]
